FAERS Safety Report 22634748 (Version 4)
Quarter: 2023Q4

REPORT INFORMATION
  Report Type: Report from Study
  Country: US (occurrence: US)
  Receive Date: 20230623
  Receipt Date: 20231019
  Transmission Date: 20240109
  Serious: No
  Sender: FDA-Public Use
  Company Number: US-002147023-NVSC2023US141629

PATIENT
  Sex: Male

DRUGS (2)
  1. ENTRESTO [Suspect]
     Active Substance: SACUBITRIL\VALSARTAN
     Indication: Product used for unknown indication
     Dosage: 1 DOSAGE FORM, BID (49 MG) (49/51 MG)
     Route: 065
     Dates: start: 202302
  2. SPIRONOLACTONE [Concomitant]
     Active Substance: SPIRONOLACTONE
     Indication: Product used for unknown indication
     Dosage: UNK
     Route: 065

REACTIONS (8)
  - Pain [Not Recovered/Not Resolved]
  - Back pain [Unknown]
  - Weight increased [Not Recovered/Not Resolved]
  - Foot fracture [Unknown]
  - Product dose omission issue [Unknown]
  - Product availability issue [Unknown]
  - Depression [Unknown]
  - Arthralgia [Unknown]
